FAERS Safety Report 15626100 (Version 2)
Quarter: 2018Q4

REPORT INFORMATION
  Report Type: Other
  Country: JP (occurrence: JP)
  Receive Date: 20181116
  Receipt Date: 20181130
  Transmission Date: 20190205
  Serious: Yes (Death, Hospitalization, Other)
  Sender: FDA-Public Use
  Company Number: JP-ACTELION-A-CH2018-181752

PATIENT
  Age: 79 Year
  Sex: Male

DRUGS (1)
  1. EPOPROSTENOL SODIUM. [Suspect]
     Active Substance: EPOPROSTENOL SODIUM
     Indication: PULMONARY HYPERTENSION
     Route: 042

REACTIONS (7)
  - Pulmonary vascular disorder [Unknown]
  - Pulmonary alveolar haemorrhage [Unknown]
  - Diffuse large B-cell lymphoma [Unknown]
  - Death [Fatal]
  - Concomitant disease aggravated [Unknown]
  - Dyspnoea [Unknown]
  - Hypoxia [Unknown]

NARRATIVE: CASE EVENT DATE: 201705
